FAERS Safety Report 25628131 (Version 1)
Quarter: 2025Q3

REPORT INFORMATION
  Report Type: Spontaneous
  Country: BR (occurrence: BR)
  Receive Date: 20250731
  Receipt Date: 20250731
  Transmission Date: 20251021
  Serious: Yes (Hospitalization, Other)
  Sender: BRISTOL-MYERS SQUIBB COMPANY
  Company Number: BR-BRISTOL-MYERS SQUIBB COMPANY-2025-103952

PATIENT
  Age: 67 Year
  Sex: Male

DRUGS (6)
  1. VIDAZA [Suspect]
     Active Substance: AZACITIDINE
     Indication: Acute myeloid leukaemia
  2. VENETOCLAX [Concomitant]
     Active Substance: VENETOCLAX
     Indication: Acute myeloid leukaemia
  3. VENETOCLAX [Concomitant]
     Active Substance: VENETOCLAX
     Dates: start: 20241216
  4. VENETOCLAX [Concomitant]
     Active Substance: VENETOCLAX
     Dates: start: 2025
  5. CYTARABINE [Concomitant]
     Active Substance: CYTARABINE
     Indication: Acute myeloid leukaemia
     Dates: start: 20241216
  6. CLADRIBINE [Concomitant]
     Active Substance: CLADRIBINE
     Indication: Acute myeloid leukaemia
     Dates: start: 20241216

REACTIONS (5)
  - Febrile neutropenia [Unknown]
  - Atrial fibrillation [Unknown]
  - Escherichia bacteraemia [Unknown]
  - Acute myeloid leukaemia [Unknown]
  - Bronchopulmonary aspergillosis [Unknown]

NARRATIVE: CASE EVENT DATE: 20241001
